FAERS Safety Report 4990538-0 (Version None)
Quarter: 2006Q2

REPORT INFORMATION
  Report Type: 
  Country: None (occurrence: None)
  Receive Date: 20060502
  Receipt Date: 20060502
  Transmission Date: 20061013
  Serious: No
  Sender: FDA-Public Use
  Company Number: None

PATIENT
  Age: 41 Year
  Sex: Female
  Weight: 82.1011 kg

DRUGS (4)
  1. HYDROXYCHLOROQUIN (GENERIC) [Suspect]
     Dates: start: 20050901, end: 20060401
  2. MOBIC [Concomitant]
  3. IMURAN [Concomitant]
  4. GLUCOTROL XL [Concomitant]

REACTIONS (4)
  - ABDOMINAL PAIN [None]
  - NAUSEA [None]
  - PHARMACEUTICAL PRODUCT COMPLAINT [None]
  - THERAPEUTIC RESPONSE UNEXPECTED WITH DRUG SUBSTITUTION [None]
